FAERS Safety Report 9059507 (Version 10)
Quarter: 2017Q3

REPORT INFORMATION
  Report Type: Spontaneous
  Country: US (occurrence: US)
  Receive Date: 20130211
  Receipt Date: 20170807
  Transmission Date: 20171128
  Serious: Yes (Hospitalization, Other)
  Sender: FDA-Public Use
  Company Number: US-009507513-1302USA004240

PATIENT
  Sex: Female
  Weight: 77.98 kg

DRUGS (4)
  1. FOSAMAX [Suspect]
     Active Substance: ALENDRONATE SODIUM
     Indication: OSTEOPOROSIS
     Dosage: 70 MG, QW
     Route: 048
     Dates: start: 20030108, end: 20080105
  2. ALENDRONATE SODIUM. [Suspect]
     Active Substance: ALENDRONATE SODIUM
     Indication: OSTEOPOROSIS
     Dosage: 70 MG, QW
     Route: 048
     Dates: start: 20080403, end: 20110622
  3. FOSAMAX [Suspect]
     Active Substance: ALENDRONATE SODIUM
     Dosage: 10 MG, QD
     Route: 048
  4. ALENDRONATE SODIUM. [Suspect]
     Active Substance: ALENDRONATE SODIUM
     Indication: OSTEOPOROSIS
     Dosage: 70 MG, QW
     Route: 048
     Dates: start: 201106, end: 201109

REACTIONS (26)
  - Leukocytosis [Unknown]
  - Oedema peripheral [Unknown]
  - Hip fracture [Unknown]
  - Muscular weakness [Unknown]
  - Nausea [Unknown]
  - Open reduction of fracture [Unknown]
  - Osteoarthritis [Unknown]
  - Varicose vein [Unknown]
  - Femur fracture [Unknown]
  - Scoliosis [Unknown]
  - Osteoarthritis [Unknown]
  - Anaemia postoperative [Unknown]
  - Fall [Unknown]
  - Hyperlipidaemia [Unknown]
  - Joint effusion [Unknown]
  - Gastrooesophageal reflux disease [Unknown]
  - Osteoarthritis [Unknown]
  - Patella fracture [Unknown]
  - Procedural haemorrhage [Unknown]
  - Dental implantation [Unknown]
  - Knee operation [Unknown]
  - Osteopenia [Unknown]
  - Joint swelling [Unknown]
  - Hypertension [Unknown]
  - Sleep apnoea syndrome [Unknown]
  - Extrasystoles [Unknown]

NARRATIVE: CASE EVENT DATE: 2008
